FAERS Safety Report 9471418 (Version 2)
Quarter: 2013Q3

REPORT INFORMATION
  Report Type: Spontaneous
  Country: US (occurrence: US)
  Receive Date: 20130822
  Receipt Date: 20130925
  Transmission Date: 20140515
  Serious: Yes (Other)
  Sender: FDA-Public Use
  Company Number: CHPA2013US013171

PATIENT
  Age: 69 Year
  Sex: Female

DRUGS (10)
  1. MAALOX ANTACID/ANTIGAS MAX QDTABS ASST [Suspect]
     Indication: FLATULENCE
     Dosage: 1 DF, QD
     Route: 048
  2. MAALOX ANTACID/ANTIGAS MAX QDTABS ASST [Suspect]
     Indication: ABDOMINAL DISTENSION
  3. MAALOX ANTACID/ANTIGAS MAX QDTABS ASST [Suspect]
     Indication: CONSTIPATION
  4. GAS-X CHEWABLE TABLETS UNKNOWN [Suspect]
     Indication: FLATULENCE
     Dosage: 1 TO 2 DF, BEFORE DOPPLER
     Route: 048
  5. GAS-X CHEWABLE TABLETS UNKNOWN [Suspect]
     Indication: PREMEDICATION
  6. PLAVIX [Concomitant]
     Dosage: UNK, UNK
  7. HYDROXYUREA [Concomitant]
     Dosage: UNK, UNK
  8. ANASTRAZOL RONTAG [Concomitant]
     Dosage: UNK, UNK
  9. ACIPHEX [Concomitant]
     Dosage: UNK, UNK
  10. ANTIHYPERTENSIVE DRUGS [Concomitant]
     Indication: HYPERTENSION
     Dosage: UNK, UNK

REACTIONS (4)
  - Bone cancer [Not Recovered/Not Resolved]
  - Diarrhoea [Recovered/Resolved]
  - Off label use [Unknown]
  - Incorrect drug administration duration [Unknown]
